FAERS Safety Report 18616669 (Version 1)
Quarter: 2020Q4

REPORT INFORMATION
  Report Type: Spontaneous
  Country: US (occurrence: US)
  Receive Date: 20201215
  Receipt Date: 20201215
  Transmission Date: 20210114
  Serious: No
  Sender: FDA-Public Use
  Company Number: US-TEVA-2020-US-1857991

PATIENT
  Sex: Female

DRUGS (1)
  1. NORTREL [Suspect]
     Active Substance: ETHINYL ESTRADIOL\NORETHINDRONE
     Indication: CONTRACEPTION
     Dosage: I HAVE BEEN ON THE NORTREL 1/35 FOR 35 YEARS
     Route: 065

REACTIONS (2)
  - Polymenorrhoea [Unknown]
  - Menstrual disorder [Unknown]
